FAERS Safety Report 10219771 (Version 1)
Quarter: 2014Q2

REPORT INFORMATION
  Report Type: Spontaneous
  Country: US (occurrence: US)
  Receive Date: 20140605
  Receipt Date: 20140605
  Transmission Date: 20141212
  Serious: Yes (Other)
  Sender: FDA-Public Use
  Company Number: US-TEVA-485812USA

PATIENT
  Sex: Female

DRUGS (1)
  1. PLAN B ONE-STEP [Suspect]
     Indication: POST COITAL CONTRACEPTION
     Dates: start: 20140406, end: 20140406

REACTIONS (3)
  - Pregnancy after post coital contraception [Unknown]
  - Abortion induced [Unknown]
  - Menstruation irregular [Unknown]
